FAERS Safety Report 18414760 (Version 1)
Quarter: 2020Q4

REPORT INFORMATION
  Report Type: Spontaneous
  Country: US (occurrence: US)
  Receive Date: 20201022
  Receipt Date: 20201022
  Transmission Date: 20210114
  Serious: No
  Sender: FDA-Public Use
  Company Number: None

PATIENT
  Age: 26 Year
  Sex: Male

DRUGS (1)
  1. GLATIRAMTER ACETATE (12X1ML) 40MG/ML MYLAN [Suspect]
     Active Substance: GLATIRAMER ACETATE
     Indication: MULTIPLE SCLEROSIS
     Route: 058
     Dates: start: 202004

REACTIONS (4)
  - Pruritus [None]
  - Drug hypersensitivity [None]
  - Swelling [None]
  - Erythema [None]

NARRATIVE: CASE EVENT DATE: 20201012
